FAERS Safety Report 10775895 (Version 6)
Quarter: 2016Q2

REPORT INFORMATION
  Report Type: Spontaneous
  Country: US (occurrence: US)
  Receive Date: 20150209
  Receipt Date: 20160506
  Transmission Date: 20160815
  Serious: Yes (Hospitalization)
  Sender: FDA-Public Use
  Company Number: US-ACTELION-A-NJ2015-112233

PATIENT
  Age: 74 Year
  Sex: Female

DRUGS (8)
  1. OPSUMIT [Suspect]
     Active Substance: MACITENTAN
     Dosage: 10 MG, QD
     Route: 048
     Dates: start: 20150305
  2. FUROSEMIDE. [Concomitant]
     Active Substance: FUROSEMIDE
     Dosage: UNK
  3. FUROSEMIDE. [Concomitant]
     Active Substance: FUROSEMIDE
     Dosage: 20 MG, UNK
     Dates: end: 201604
  4. ADCIRCA [Concomitant]
     Active Substance: TADALAFIL
     Dosage: UNK
  5. OXYGEN. [Concomitant]
     Active Substance: OXYGEN
     Dosage: 2 L/MIN, UNK
  6. OPSUMIT [Suspect]
     Active Substance: MACITENTAN
     Indication: PULMONARY ARTERIAL HYPERTENSION
     Dosage: 10 MG, QD
     Route: 048
     Dates: start: 201401
  7. MULTIVITAMIN [Concomitant]
     Active Substance: VITAMINS
  8. WARFARIN [Concomitant]
     Active Substance: WARFARIN

REACTIONS (8)
  - Oesophagitis [Recovered/Resolved]
  - Pulmonary function test decreased [Not Recovered/Not Resolved]
  - Hernia diaphragmatic repair [Recovered/Resolved]
  - Drug dose omission [Recovered/Resolved]
  - Impaired driving ability [Not Recovered/Not Resolved]
  - Dysphagia [Recovering/Resolving]
  - Diaphragmatic hernia [Recovered/Resolved]
  - Endotracheal intubation [Unknown]

NARRATIVE: CASE EVENT DATE: 2015
